FAERS Safety Report 6398243-3 (Version None)
Quarter: 2009Q4

REPORT INFORMATION
  Report Type: 
  Country: None (occurrence: None)
  Receive Date: 20091013
  Receipt Date: 20091002
  Transmission Date: 20100525
  Serious: Yes (Other)
  Sender: FDA-Public Use
  Company Number: PHHY2009BR42725

PATIENT
  Age: 47 Year
  Sex: Female
  Weight: 68 kg

DRUGS (4)
  1. TEGRETOL [Suspect]
     Indication: MENTAL RETARDATION
     Dosage: 200 MG, TID
     Route: 048
  2. TEGRETOL [Suspect]
     Dosage: 0.5 DF
     Route: 048
  3. TEGRETOL [Suspect]
     Dosage: 200 MG, TID
     Route: 048
  4. DIAZEPAM [Concomitant]

REACTIONS (5)
  - AGGRESSION [None]
  - HEADACHE [None]
  - INTENTIONAL DRUG MISUSE [None]
  - MALAISE [None]
  - TREATMENT NONCOMPLIANCE [None]
